FAERS Safety Report 21103978 (Version 1)
Quarter: 2022Q3

REPORT INFORMATION
  Report Type: Spontaneous
  Country: PK (occurrence: PK)
  Receive Date: 20220720
  Receipt Date: 20220720
  Transmission Date: 20221027
  Serious: Yes (Other)
  Sender: FDA-Public Use
  Company Number: PK-STRIDES ARCOLAB LIMITED-2022SP009029

PATIENT
  Age: 9 Year
  Sex: Male

DRUGS (12)
  1. PREDNISOLONE [Suspect]
     Active Substance: PREDNISOLONE
     Indication: Plasmablastic lymphoma
     Dosage: UNK, FIRST CYCLE OF PREPHASE
     Route: 065
  2. PREDNISOLONE [Suspect]
     Active Substance: PREDNISOLONE
     Dosage: UNK,  2 CYCLES- AS A PART OF INDUCTION CHEMOTHERAPY COPADM
     Route: 065
  3. ETOPOSIDE [Suspect]
     Active Substance: ETOPOSIDE
     Indication: Plasmablastic lymphoma
     Dosage: UNK, CONSOLIDATION COURSES OF CHEMOTHERAPY- 2 CYCLES
     Route: 065
  4. ETOPOSIDE [Suspect]
     Active Substance: ETOPOSIDE
     Dosage: UNK, MAINTENANCE CYCLES
     Route: 065
  5. METHOTREXATE [Suspect]
     Active Substance: METHOTREXATE
     Indication: Plasmablastic lymphoma
     Dosage: UNK, 2 CYCLES- AS A PART OF INDUCTION CHEMOTHERAPY COPADM (HIGH-DOSE)
     Route: 065
  6. CYCLOPHOSPHAMIDE [Suspect]
     Active Substance: CYCLOPHOSPHAMIDE
     Indication: Plasmablastic lymphoma
     Dosage: UNK, FIRST CYCLE OF PREPHASE
     Route: 065
  7. CYCLOPHOSPHAMIDE [Suspect]
     Active Substance: CYCLOPHOSPHAMIDE
     Dosage: UNK, 2 CYCLES- AS A PART OF COPADM INDUCTION CHEMOTHERAPY
     Route: 065
  8. VINCRISTINE [Suspect]
     Active Substance: VINCRISTINE
     Indication: Plasmablastic lymphoma
     Dosage: UNK, FIRST CYCLE OF PREPHASE
     Route: 065
  9. VINCRISTINE [Suspect]
     Active Substance: VINCRISTINE
     Dosage: UNK, 2 CYCLES- AS A PART OF COPADM INDUCTION CHEMOTHERAPY
     Route: 065
  10. ADRIAMYCIN [Suspect]
     Active Substance: DOXORUBICIN HYDROCHLORIDE
     Indication: Plasmablastic lymphoma
     Dosage: UNK, 2 CYCLES- AS A PART OF INDUCTION CHEMOTHERAPY COPADM
     Route: 065
  11. CYTARABINE [Suspect]
     Active Substance: CYTARABINE
     Indication: Plasmablastic lymphoma
     Dosage: UNK, CONSOLIDATION COURSES OF CHEMOTHERAPY- 2 CYCLES
     Route: 065
  12. CYTARABINE [Suspect]
     Active Substance: CYTARABINE
     Dosage: UNK, MAINTENANCE CYCLES
     Route: 065

REACTIONS (8)
  - Rectal haemorrhage [Unknown]
  - Febrile neutropenia [Unknown]
  - Myelosuppression [Unknown]
  - Toxicity to various agents [Unknown]
  - Mucosal inflammation [Unknown]
  - Nausea [Unknown]
  - Vomiting [Unknown]
  - Off label use [Unknown]
